FAERS Safety Report 5288386-X (Version None)
Quarter: 2007Q1

REPORT INFORMATION
  Report Type: 
  Country: None (occurrence: None)
  Receive Date: 20070116
  Receipt Date: 20060628
  Transmission Date: 20070707
  Serious: No
  Sender: FDA-Public Use
  Company Number: FEI2006-0938

PATIENT
  Age: 30 Year
  Sex: Female
  Weight: 63.9572 kg

DRUGS (2)
  1. PARAGARD T 380A [Suspect]
     Indication: CONTRACEPTION
     Dosage: INTRA-UTERINE
     Route: 015
     Dates: start: 20040412
  2. NATALCARE PLUS (NATALCARE)(TABLETS) [Concomitant]

REACTIONS (5)
  - ABDOMINAL PAIN [None]
  - INTRA-UTERINE CONTRACEPTIVE DEVICE [None]
  - IUCD COMPLICATION [None]
  - UNINTENDED PREGNANCY [None]
  - UTERINE PERFORATION [None]
